FAERS Safety Report 10415163 (Version 1)
Quarter: 2014Q3

REPORT INFORMATION
  Report Type: Spontaneous
  Country: US (occurrence: None)
  Receive Date: 20140827
  Receipt Date: 20140827
  Transmission Date: 20150326
  Serious: Yes (Hospitalization)
  Sender: FDA-Public Use
  Company Number: None

PATIENT
  Age: 74 Year
  Sex: Male

DRUGS (4)
  1. SUTENT [Concomitant]
     Active Substance: SUNITINIB MALATE
  2. ZYTIGA [Suspect]
     Active Substance: ABIRATERONE ACETATE
     Indication: PROSTATE CANCER
     Dosage: 4 TABS, DAILY, ORAL
     Route: 048
     Dates: start: 20140507, end: 20140812
  3. DRONABINOL. [Concomitant]
     Active Substance: DRONABINOL
  4. ZYTIGA [Suspect]
     Active Substance: ABIRATERONE ACETATE
     Indication: RENAL CANCER
     Dosage: 4 TABS, DAILY, ORAL
     Route: 048
     Dates: start: 20140507, end: 20140812

REACTIONS (4)
  - Aphagia [None]
  - Pulmonary mass [None]
  - Asthenia [None]
  - Lymphadenopathy [None]

NARRATIVE: CASE EVENT DATE: 20140812
